FAERS Safety Report 8181427-1 (Version None)
Quarter: 2012Q1

REPORT INFORMATION
  Report Type: 
  Country: None (occurrence: None)
  Receive Date: 20120302
  Receipt Date: 20120222
  Transmission Date: 20120608
  Serious: Yes (Hospitalization)
  Sender: FDA-Public Use
  Company Number: FR-GILEAD-2012-0051305

PATIENT
  Sex: Male

DRUGS (1)
  1. VIREAD [Suspect]
     Indication: HIV INFECTION
     Dosage: 0.5 DF, QD
     Route: 048
     Dates: start: 20080328, end: 20100831

REACTIONS (2)
  - DRUG LEVEL INCREASED [None]
  - RENAL TUBULAR DISORDER [None]
